FAERS Safety Report 8733730 (Version 2)
Quarter: 2012Q4

REPORT INFORMATION
  Report Type: 
  Country: US (occurrence: US)
  Receive Date: 20120821
  Receipt Date: 20121129
  Transmission Date: 20130627
  Serious: Yes (Hospitalization)
  Sender: FDA-Public Use
  Company Number: US-BAYER-2012-083068

PATIENT
  Age: 38 Year
  Sex: Female
  Weight: 68.03 kg

DRUGS (7)
  1. YAZ [Suspect]
     Indication: CONTRACEPTION
     Dosage: UNK
     Dates: start: 200508, end: 201205
  2. YASMIN [Suspect]
     Indication: CONTRACEPTION
     Dosage: UNK
     Dates: start: 200508, end: 201205
  3. YASMIN [Suspect]
     Indication: CONTRACEPTION
     Dosage: UNK
     Dates: start: 200508, end: 200710
  4. HYDROCHLOROTHIAZIDE [Concomitant]
  5. BUSPAR [Concomitant]
  6. PHENERGAN [Concomitant]
  7. ULTRACET [Concomitant]

REACTIONS (6)
  - Cholecystitis [None]
  - Cholecystitis chronic [None]
  - Injury [None]
  - Pain [None]
  - Abdominal pain [None]
  - Emotional distress [None]
